FAERS Safety Report 6576762-4 (Version None)
Quarter: 2010Q1

REPORT INFORMATION
  Report Type: 
  Country: None (occurrence: None)
  Receive Date: 20100210
  Receipt Date: 20100129
  Transmission Date: 20100710
  Serious: Yes (Hospitalization, Other)
  Sender: FDA-Public Use
  Company Number: US-ELI_LILLY_AND_COMPANY-US200912004409

PATIENT
  Age: 57 Year
  Sex: Male
  Weight: 93.878 kg

DRUGS (9)
  1. EFFIENT [Suspect]
     Indication: STENT PLACEMENT
     Dosage: 10 MG, DAILY (1/D)
     Dates: start: 20090812, end: 20091129
  2. EFFIENT [Suspect]
     Dosage: 10 MG, DAILY (1/D)
     Dates: start: 20090101
  3. ASPIRIN [Concomitant]
     Dosage: 81 MG, DAILY (1/D)
  4. NAPROSYN [Concomitant]
  5. IBUPROFEN [Concomitant]
  6. LIPITOR [Concomitant]
     Dosage: 80 MG, DAILY (1/D)
  7. LYRICA [Concomitant]
     Dosage: 25 MG, DAILY (1/D)
  8. ULTRAM [Concomitant]
     Dosage: 50 MG, EVERY 6 HRS
  9. HYDROCODONE BITARTRATE AND ACETAMINOPHEN [Concomitant]
     Dosage: UNK, AS NEEDED

REACTIONS (4)
  - DRUG DOSE OMISSION [None]
  - DUODENAL ULCER [None]
  - GASTRITIS EROSIVE [None]
  - GASTROINTESTINAL HAEMORRHAGE [None]
